FAERS Safety Report 24156538 (Version 1)
Quarter: 2024Q3

REPORT INFORMATION
  Report Type: Spontaneous
  Country: JP (occurrence: JP)
  Receive Date: 20240731
  Receipt Date: 20240731
  Transmission Date: 20241016
  Serious: Yes (Other)
  Sender: VIFOR
  Company Number: JP-CHUGAI-2024023473

PATIENT
  Age: 37 Year
  Sex: Female
  Weight: 83.5 kg

DRUGS (4)
  1. MIRCERA [Suspect]
     Active Substance: METHOXY POLYETHYLENE GLYCOL-EPOETIN BETA
     Indication: Nephrogenic anaemia
     Route: 058
  2. FUROSEMIDE [Concomitant]
     Active Substance: FUROSEMIDE
  3. AMLODIPINE [Concomitant]
     Active Substance: AMLODIPINE BESYLATE
  4. NIFEDIPINE [Concomitant]
     Active Substance: NIFEDIPINE

REACTIONS (4)
  - Pre-eclampsia [Unknown]
  - Breech presentation [Recovered/Resolved]
  - Premature delivery [Unknown]
  - Maternal exposure during pregnancy [Unknown]
